FAERS Safety Report 13586718 (Version 1)
Quarter: 2017Q2

REPORT INFORMATION
  Report Type: Spontaneous
  Country: US (occurrence: US)
  Receive Date: 20170526
  Receipt Date: 20170526
  Transmission Date: 20170830
  Serious: No
  Sender: FDA-Public Use
  Company Number: US-BIOGEN-2017BI00405687

PATIENT
  Sex: Female

DRUGS (2)
  1. KEFFLEX [Concomitant]
     Indication: PRODUCT USED FOR UNKNOWN INDICATION
     Route: 065
  2. AVONEX [Suspect]
     Active Substance: INTERFERON BETA-1A
     Indication: MULTIPLE SCLEROSIS
     Route: 065
     Dates: start: 19990618

REACTIONS (6)
  - Bronchitis [Unknown]
  - Viral upper respiratory tract infection [Not Recovered/Not Resolved]
  - Renal disorder [Unknown]
  - Cystitis [Recovered/Resolved]
  - Pneumonia [Unknown]
  - Renal function test abnormal [Unknown]
